FAERS Safety Report 8510977 (Version 2)
Quarter: 2014Q4

REPORT INFORMATION
  Report Type: Report from Study
  Country: AU (occurrence: AU)
  Receive Date: 20120413
  Receipt Date: 20141228
  Transmission Date: 20150529
  Serious: Yes (Other)
  Sender: FDA-Public Use
  Company Number: AU-ROCHE-1058535

PATIENT
  Sex: Female

DRUGS (2)
  1. ACTEMRA [Suspect]
     Active Substance: TOCILIZUMAB
     Indication: RHEUMATOID ARTHRITIS
     Dosage: ON 14/MAR/2012, LAST DOSE
     Route: 042
     Dates: start: 20100730, end: 20120815
  2. ACTEMRA [Suspect]
     Active Substance: TOCILIZUMAB
     Dosage: ON 14/MAR/2012 SHE RECEIVED LAST DOSE OF TOCILIZUMAB.
     Route: 042
     Dates: start: 20101027, end: 20120815

REACTIONS (1)
  - Back pain [Unknown]
